FAERS Safety Report 23214100 (Version 2)
Quarter: 2023Q4

REPORT INFORMATION
  Report Type: Spontaneous
  Country: BR (occurrence: BR)
  Receive Date: 20231121
  Receipt Date: 20231130
  Transmission Date: 20240110
  Serious: Yes (Other)
  Sender: FDA-Public Use
  Company Number: BR-GE HEALTHCARE-2023CSU010375

PATIENT
  Age: 17 Year
  Sex: Female

DRUGS (2)
  1. OMNISCAN [Suspect]
     Active Substance: GADODIAMIDE
     Indication: Magnetic resonance imaging pelvic
     Dosage: 15 ML, SINGLE
     Route: 042
     Dates: start: 20231013, end: 20231013
  2. OMNISCAN [Suspect]
     Active Substance: GADODIAMIDE
     Indication: Abdominal pain

REACTIONS (3)
  - Painful respiration [Recovered/Resolved]
  - Dyspnoea [Recovered/Resolved]
  - Cough [Recovered/Resolved]

NARRATIVE: CASE EVENT DATE: 20231013
